FAERS Safety Report 5032602-6 (Version None)
Quarter: 2006Q2

REPORT INFORMATION
  Report Type: 
  Country: None (occurrence: None)
  Receive Date: 20060620
  Receipt Date: 20060601
  Transmission Date: 20061013
  Serious: Yes (Hospitalization, Other)
  Sender: FDA-Public Use
  Company Number: US_991030397

PATIENT
  Age: 40 Year
  Sex: Female
  Weight: 68.2 kg

DRUGS (8)
  1. ILETIN (INSULIN, ANIMAL BEEF/PORK REGULAR) VIAL [Suspect]
     Indication: DIABETES MELLITUS
     Dosage: 20 U DAILY (1/D), SUBCUTANEOUS
     Route: 058
     Dates: start: 19991001
  2. HUMALOG [Suspect]
     Indication: DIABETES MELLITUS
     Dosage: AS NEEDED, SUBCUTANEOUS
     Route: 058
     Dates: start: 19990401, end: 19991001
  3. ILETIN(INSULIN, ANIMAL PORK REGULAR) VIAL [Suspect]
     Indication: DIABETES MELLITUS
     Dosage: SUBCUTANEOUS
     Route: 058
     Dates: start: 19800101
  4. ILETIN(INSULIN, ANIMAL PORK NPH) VIAL [Suspect]
     Indication: DIABETES MELLITUS INSULIN-DEPENDENT
     Dosage: SUBCUTANEOUS
     Route: 058
  5. VASOTEC [Concomitant]
  6. ORAL CONTRACEPTIVE NOS (ORAL CONTRACEPTIVE NOS) [Concomitant]
  7. VITAMIN B COMPLEX CAP [Concomitant]
  8. VITAMIN E [Concomitant]

REACTIONS (46)
  - ABDOMINAL DISTENSION [None]
  - ABDOMINAL PAIN UPPER [None]
  - ANKLE FRACTURE [None]
  - ARTHRALGIA [None]
  - BALANCE DISORDER [None]
  - BLOOD GLUCOSE DECREASED [None]
  - CONSTIPATION [None]
  - DELIRIUM [None]
  - DIABETES MELLITUS INADEQUATE CONTROL [None]
  - DIABETIC COMPLICATION [None]
  - DIARRHOEA [None]
  - DRUG INEFFECTIVE [None]
  - FEELING ABNORMAL [None]
  - FEELING HOT [None]
  - GLYCOSYLATED HAEMOGLOBIN INCREASED [None]
  - HELMINTHIC INFECTION [None]
  - HEMIPLEGIA [None]
  - HIRSUTISM [None]
  - HYPERGLYCAEMIA [None]
  - HYPERSENSITIVITY [None]
  - HYPOGLYCAEMIA [None]
  - IMPAIRED HEALING [None]
  - INFECTION [None]
  - INJECTION SITE ERYTHEMA [None]
  - INJECTION SITE HAEMORRHAGE [None]
  - INJECTION SITE INFECTION [None]
  - INJECTION SITE INFLAMMATION [None]
  - INJECTION SITE MASS [None]
  - INJECTION SITE REACTION [None]
  - MALAISE [None]
  - NEUROPATHY [None]
  - PALATAL DISORDER [None]
  - PHARMACEUTICAL PRODUCT COMPLAINT [None]
  - POLYMENORRHOEA [None]
  - RENAL FAILURE [None]
  - RETINOPATHY [None]
  - ROAD TRAFFIC ACCIDENT [None]
  - SALIVARY HYPERSECRETION [None]
  - SKIN ODOUR ABNORMAL [None]
  - SOMNOLENCE [None]
  - SPEECH DISORDER [None]
  - SPINAL DISORDER [None]
  - SWELLING [None]
  - TRAUMATIC BRAIN INJURY [None]
  - WEIGHT DECREASED [None]
  - WEIGHT INCREASED [None]
